FAERS Safety Report 15763666 (Version 1)
Quarter: 2018Q4

REPORT INFORMATION
  Report Type: Spontaneous
  Country: US (occurrence: US)
  Receive Date: 20181227
  Receipt Date: 20181227
  Transmission Date: 20190205
  Serious: No
  Sender: FDA-Public Use
  Company Number: US-DRREDDYS-USA/USA/18/0102521

PATIENT
  Age: 25 Year
  Sex: Female
  Weight: 61 kg

DRUGS (1)
  1. NICOTINE. [Suspect]
     Active Substance: NICOTINE
     Indication: SMOKING CESSATION THERAPY
     Route: 062
     Dates: start: 20180719

REACTIONS (4)
  - Inappropriate schedule of product administration [Unknown]
  - Nicotine dependence [Unknown]
  - Exposure during pregnancy [Unknown]
  - Product complaint [Unknown]

NARRATIVE: CASE EVENT DATE: 20180719
